FAERS Safety Report 18227845 (Version 1)
Quarter: 2020Q3

REPORT INFORMATION
  Report Type: Spontaneous
  Country: FR (occurrence: FR)
  Receive Date: 20200903
  Receipt Date: 20200903
  Transmission Date: 20201103
  Serious: Yes (Hospitalization)
  Sender: FDA-Public Use
  Company Number: FR-ELI_LILLY_AND_COMPANY-FR202008009526

PATIENT
  Age: 2 Day
  Sex: Male
  Weight: 2.02 kg

DRUGS (5)
  1. METHADONE AP HP [Interacting]
     Active Substance: METHADONE HYDROCHLORIDE
     Indication: DRUG ABUSER
     Dosage: 60 MG, DAILY
     Route: 064
     Dates: end: 20200208
  2. ZYPREXA [Suspect]
     Active Substance: OLANZAPINE
     Indication: PRODUCT USED FOR UNKNOWN INDICATION
     Dosage: 10 MG, DAILY
     Route: 064
     Dates: start: 20200204, end: 20200208
  3. VALIUM [Interacting]
     Active Substance: DIAZEPAM
     Indication: SCHIZOAFFECTIVE DISORDER
     Dosage: 20 MG, DAILY
     Route: 064
     Dates: start: 2019, end: 20200204
  4. SERESTA [Interacting]
     Active Substance: OXAZEPAM
     Indication: SCHIZOPHRENIA
     Dosage: 1 DOSAGE FORM, DAILY
     Route: 064
     Dates: start: 20200204, end: 20200208
  5. LOXAPAC [LOXAPINE SUCCINATE] [Interacting]
     Active Substance: LOXAPINE SUCCINATE
     Indication: SCHIZOPHRENIA
     Dosage: 50 MG, PRN
     Route: 064
     Dates: start: 20200204, end: 20200208

REACTIONS (3)
  - Foetal exposure during pregnancy [Unknown]
  - Withdrawal syndrome [Recovered/Resolved]
  - Agitation neonatal [Recovered/Resolved]

NARRATIVE: CASE EVENT DATE: 20200210
